FAERS Safety Report 19938978 (Version 1)
Quarter: 2021Q4

REPORT INFORMATION
  Report Type: Spontaneous
  Country: US (occurrence: US)
  Receive Date: 20211011
  Receipt Date: 20211011
  Transmission Date: 20220304
  Serious: Yes (Other)
  Sender: FDA-Public Use
  Company Number: US-MYLANLABS-2021M1019816

PATIENT
  Age: 63 Year
  Sex: Female

DRUGS (6)
  1. PREDNISONE [Suspect]
     Active Substance: PREDNISONE
     Indication: Vestibular neuronitis
     Route: 065
     Dates: start: 2020
  2. PREDNISONE [Suspect]
     Active Substance: PREDNISONE
     Dosage: A GRADUAL TAPER OVER THE NEXT 10 DAYS
     Route: 065
     Dates: start: 2020, end: 2020
  3. ASPIRIN [Concomitant]
     Active Substance: ASPIRIN
     Indication: Oral herpes
     Dosage: UNKNOWN
     Route: 065
     Dates: start: 2020
  4. CALCIUM [Concomitant]
     Active Substance: CALCIUM
     Indication: Mineral supplementation
     Dosage: UNKNOWN
     Route: 065
     Dates: start: 2020
  5. MECLIZINE [Concomitant]
     Active Substance: MECLIZINE HYDROCHLORIDE
     Indication: Motion sickness
     Dosage: UNKNOWN
     Route: 065
     Dates: start: 2020
  6. MECLIZINE [Concomitant]
     Active Substance: MECLIZINE HYDROCHLORIDE
     Indication: Vestibular neuronitis

REACTIONS (2)
  - Intraocular pressure increased [Recovering/Resolving]
  - Vitreous detachment [Recovering/Resolving]

NARRATIVE: CASE EVENT DATE: 20200101
